FAERS Safety Report 25915850 (Version 1)
Quarter: 2025Q4

REPORT INFORMATION
  Report Type: Spontaneous
  Country: US (occurrence: US)
  Receive Date: 20251013
  Receipt Date: 20251013
  Transmission Date: 20260118
  Serious: Yes (Other)
  Sender: NOVO NORDISK
  Company Number: US-NOVOPROD-1536700

PATIENT
  Age: 46 Year
  Sex: Female

DRUGS (2)
  1. OZEMPIC [Suspect]
     Active Substance: SEMAGLUTIDE
     Dosage: 2 MG (DOSE RE-STARTED)
     Dates: start: 20231001, end: 20240701
  2. OZEMPIC [Suspect]
     Active Substance: SEMAGLUTIDE
     Indication: Type 2 diabetes mellitus
     Dosage: UNK

REACTIONS (3)
  - Sleeve gastrectomy [Unknown]
  - Optic disc oedema [Unknown]
  - Serous retinal detachment [Unknown]

NARRATIVE: CASE EVENT DATE: 20240101
